FAERS Safety Report 20802706 (Version 2)
Quarter: 2022Q2

REPORT INFORMATION
  Report Type: Spontaneous
  Country: US (occurrence: US)
  Receive Date: 20220509
  Receipt Date: 20220607
  Transmission Date: 20220720
  Serious: No
  Sender: FDA-Public Use
  Company Number: US-ORGANON-O2205USA000509

PATIENT
  Sex: Female
  Weight: 198.5 kg

DRUGS (3)
  1. NEXPLANON [Suspect]
     Active Substance: ETONOGESTREL
     Dosage: 1 IMPLANT FOR APPROXIMATELY 4 YEARS
     Route: 059
     Dates: start: 2018, end: 20220330
  2. NEXPLANON [Suspect]
     Active Substance: ETONOGESTREL
     Dosage: ONE IMPLANT, ONCE EVERY THREE YEARS, RIGHT UPPER ARM
     Route: 059
     Dates: start: 20220330
  3. LIDOCAINE [Concomitant]
     Active Substance: LIDOCAINE
     Dosage: 5 MILLILITER TOTAL
     Dates: start: 20220330

REACTIONS (4)
  - Incision site impaired healing [Unknown]
  - Implant site pain [Unknown]
  - Complication associated with device [Not Recovered/Not Resolved]
  - Incorrect product administration duration [Unknown]

NARRATIVE: CASE EVENT DATE: 20210101
